FAERS Safety Report 10025964 (Version 1)
Quarter: 2014Q1

REPORT INFORMATION
  Report Type: Spontaneous
  Country: JP (occurrence: JP)
  Receive Date: 20140320
  Receipt Date: 20140320
  Transmission Date: 20141002
  Serious: Yes (Hospitalization)
  Sender: FDA-Public Use
  Company Number: JP-KOWA-2014S1000318

PATIENT
  Age: 78 Year
  Sex: Female
  Weight: 41 kg

DRUGS (6)
  1. LIVALO [Suspect]
     Indication: TYPE 2 DIABETES MELLITUS
     Route: 048
  2. PIOGLITAZONE [Suspect]
     Indication: TYPE 2 DIABETES MELLITUS
     Route: 048
     Dates: start: 20121213, end: 20130311
  3. HUMALOG [Concomitant]
  4. LANTUS [Concomitant]
  5. MYSLEE [Concomitant]
  6. MERCAZOLE [Concomitant]

REACTIONS (3)
  - Hypoglycaemia [Recovered/Resolved]
  - Hypoglycaemia [Recovered/Resolved]
  - Hypoglycaemia [Recovered/Resolved]
